FAERS Safety Report 19415730 (Version 4)
Quarter: 2022Q1

REPORT INFORMATION
  Report Type: Report from Study
  Country: FR (occurrence: FR)
  Receive Date: 20210614
  Receipt Date: 20220121
  Transmission Date: 20220423
  Serious: Yes (Other)
  Sender: FDA-Public Use
  Company Number: FR-UNICANCER-2021000475

PATIENT
  Age: 67 Year
  Sex: Female
  Weight: 47 kg

DRUGS (9)
  1. TRASTUZUMAB DERUXTECAN [Suspect]
     Active Substance: TRASTUZUMAB DERUXTECAN
     Indication: Breast cancer metastatic
     Dosage: 1 DF, CYCLIC (ONCE PER 21 DAYS CYCLE)
     Route: 042
     Dates: start: 20201022, end: 20201022
  2. TRASTUZUMAB DERUXTECAN [Suspect]
     Active Substance: TRASTUZUMAB DERUXTECAN
     Dosage: 1 DF, CYCLIC (ONCE PER 21-DAYS CYCLE)
     Route: 042
  3. TRASTUZUMAB DERUXTECAN [Suspect]
     Active Substance: TRASTUZUMAB DERUXTECAN
     Dosage: 243 MG, CYCLIC (ONCE PER 21-DAYS CYCLE)
     Route: 042
     Dates: start: 20210429, end: 20210429
  4. TRASTUZUMAB DERUXTECAN [Suspect]
     Active Substance: TRASTUZUMAB DERUXTECAN
     Dosage: 1 DF,CYCLIC (ONCE PER 21-DAYS CYCLE)
     Dates: start: 20210617, end: 20210617
  5. LEVOTHYROXINE [Concomitant]
     Active Substance: LEVOTHYROXINE
     Indication: Thyroidectomy
     Dosage: UNK
     Route: 048
     Dates: start: 2004
  6. BROMAZEPAM [Concomitant]
     Active Substance: BROMAZEPAM
     Indication: Anxiolytic therapy
     Dosage: 0.5 DF, QD
     Route: 048
     Dates: start: 2006
  7. IXPRIM [Concomitant]
     Active Substance: ACETAMINOPHEN\TRAMADOL HYDROCHLORIDE
     Indication: Arthralgia
     Dosage: 3 TO 4 DF, QD
     Route: 048
     Dates: start: 20201030
  8. ZOPHREN                            /00955301/ [Concomitant]
     Indication: Nausea
     Dosage: 8 MG, QD
     Route: 048
     Dates: start: 20201022, end: 20210520
  9. ZOPHREN                            /00955301/ [Concomitant]
     Dosage: UNK
     Dates: start: 202109

REACTIONS (4)
  - Electrocardiogram QT prolonged [Recovered/Resolved]
  - Electrocardiogram QT prolonged [Unknown]
  - Electrocardiogram QT prolonged [Unknown]
  - Electrocardiogram QT prolonged [Unknown]

NARRATIVE: CASE EVENT DATE: 20210520
